FAERS Safety Report 4458998-1 (Version None)
Quarter: 2004Q3

REPORT INFORMATION
  Report Type: 
  Country: None (occurrence: None)
  Receive Date: 20040922
  Receipt Date: 20040922
  Transmission Date: 20050211
  Serious: No
  Sender: FDA-Public Use
  Company Number: None

PATIENT
  Age: 81 Year
  Sex: Female

DRUGS (2)
  1. ASPIRIN [Suspect]
     Dosage: 81 MG QD
  2. ENOXAPARIN SODIUM [Suspect]
     Dosage: 30 SQ Q12
     Route: 058

REACTIONS (3)
  - FEMUR FRACTURE [None]
  - HAEMATURIA [None]
  - URINARY TRACT INFECTION [None]
